FAERS Safety Report 8193797-9 (Version None)
Quarter: 2012Q1

REPORT INFORMATION
  Report Type: 
  Country: None (occurrence: None)
  Receive Date: 20120308
  Receipt Date: 20120229
  Transmission Date: 20120608
  Serious: Yes (Other)
  Sender: FDA-Public Use
  Company Number: PHHY2012TR017618

PATIENT
  Age: 10 Year
  Sex: Male

DRUGS (3)
  1. RISPERIDONE [Suspect]
     Indication: AGITATION
     Dosage: 1 MG, PER DAY
  2. RISPERIDONE [Suspect]
     Dosage: 0.25 MG, PER DAY
  3. RISPERIDONE [Suspect]
     Dosage: 0.5 MG, PER DAY

REACTIONS (4)
  - DEFAECATION URGENCY [None]
  - URINARY INCONTINENCE [None]
  - FAECAL INCONTINENCE [None]
  - MICTURITION URGENCY [None]
